FAERS Safety Report 10370920 (Version 1)
Quarter: 2014Q1

REPORT INFORMATION
  Report Type: Spontaneous
  Country: US (occurrence: None)
  Receive Date: 20140306
  Receipt Date: 20140306
  Transmission Date: 20141002
  Serious: Yes (Other)
  Sender: FDA-Public Use
  Company Number: 163-21880-13010117

PATIENT
  Age: 83 Year
  Sex: Female

DRUGS (3)
  1. REVLIMID (LENALIDOMIDE) (5 MILLIGRAM, CAPSULES) [Suspect]
     Indication: MYELODYSPLASTIC SYNDROME
     Route: 048
     Dates: start: 20120724
  2. HYDROCHLOROTHIAZIDE [Concomitant]
  3. HYDROCODONE-ACETAMINOPHEN (REMEDEINE) [Concomitant]

REACTIONS (1)
  - Atrial fibrillation [None]
